FAERS Safety Report 4578331-4 (Version None)
Quarter: 2005Q1

REPORT INFORMATION
  Report Type: 
  Country: None (occurrence: None)
  Receive Date: 20050211
  Receipt Date: 20041230
  Transmission Date: 20050727
  Serious: Yes (Life-Threatening, Hospitalization)
  Sender: FDA-Public Use
  Company Number: 200419892US

PATIENT
  Age: 48 Year
  Sex: Male
  Weight: 121.8 kg

DRUGS (9)
  1. KETEK [Suspect]
     Indication: SINUSITIS
     Route: 048
     Dates: start: 20041220
  2. MESTINON [Concomitant]
     Dosage: DOSE: UNK
  3. DIOVAN [Concomitant]
     Dosage: DOSE: UNK
  4. DIAZEPAM [Concomitant]
     Dosage: DOSE: UNK
  5. SINGULAIR [Concomitant]
     Dosage: DOSE: UNK
  6. SEREVENT [Concomitant]
     Dosage: DOSE: UNK
  7. PREDNISONE [Concomitant]
     Dosage: DOSE: UNK
  8. PAXIL [Concomitant]
     Dosage: DOSE: UNK
  9. ASPIRIN [Concomitant]
     Dosage: DOSE: UNK

REACTIONS (3)
  - CARDIAC ARREST [None]
  - LOSS OF CONSCIOUSNESS [None]
  - RESPIRATORY ARREST [None]
